FAERS Safety Report 18123436 (Version 1)
Quarter: 2020Q3

REPORT INFORMATION
  Report Type: Report from Study
  Country: IT (occurrence: IT)
  Receive Date: 20200807
  Receipt Date: 20200807
  Transmission Date: 20201103
  Serious: Yes (Disabling, Other)
  Sender: FDA-Public Use
  Company Number: IT-TEVA-2020-IT-1812539

PATIENT
  Age: 6 Decade
  Sex: Male

DRUGS (10)
  1. IMMUNOGLOBULIN (IVIG) [Suspect]
     Active Substance: HUMAN IMMUNOGLOBULIN G
     Indication: IMMUNE-MEDIATED NEUROPATHY
     Dosage: 2 G/KG FOR 4 DAYS
     Route: 042
  2. IMMUNOGLOBULIN (IVIG) [Suspect]
     Active Substance: HUMAN IMMUNOGLOBULIN G
     Dosage: 1 G/KG OVER 2 DAYS
     Route: 042
  3. METHYLPREDNISOLONE. [Suspect]
     Active Substance: METHYLPREDNISOLONE
     Indication: AUTOIMMUNE NEUROPATHY
     Dosage: 500 MILLIGRAM DAILY;
     Route: 042
     Dates: start: 200403
  4. IMMUNOGLOBULIN (IVIG) [Suspect]
     Active Substance: HUMAN IMMUNOGLOBULIN G
     Dosage: 20% REDUCTION IN THE IMMUNOGLOBULIN (IVIG) DOSAGE
     Route: 042
  5. RITUXIMAB. [Concomitant]
     Active Substance: RITUXIMAB
     Indication: ATAXIA
  6. PREDNISONE. [Suspect]
     Active Substance: PREDNISONE
     Indication: AUTOIMMUNE NEUROPATHY
     Dosage: .75 MG/KG DAILY;
     Route: 048
  7. IMMUNOGLOBULIN (IVIG) [Suspect]
     Active Substance: HUMAN IMMUNOGLOBULIN G
     Indication: ATAXIA
     Dosage: DOSE TAPERED
     Route: 042
  8. AZATHIOPRINE. [Concomitant]
     Active Substance: AZATHIOPRINE
     Indication: IMMUNE-MEDIATED NEUROPATHY
     Dosage: 2.5 MG/KG DAILY;
     Route: 065
     Dates: start: 2011
  9. AZATHIOPRINE. [Concomitant]
     Active Substance: AZATHIOPRINE
     Indication: ATAXIA
  10. RITUXIMAB. [Concomitant]
     Active Substance: RITUXIMAB
     Indication: IMMUNE-MEDIATED NEUROPATHY
     Dosage: FOUR INFUSIONS ADMINISTERED 6 MONTHS APART
     Route: 065
     Dates: start: 2014

REACTIONS (11)
  - Paradoxical drug reaction [Recovering/Resolving]
  - Immune-mediated neuropathy [Recovering/Resolving]
  - Demyelination [Recovering/Resolving]
  - Drug ineffective [Unknown]
  - Disability [Recovering/Resolving]
  - Bedridden [Recovering/Resolving]
  - Condition aggravated [Recovering/Resolving]
  - Ataxia [Recovering/Resolving]
  - Dysphagia [Recovering/Resolving]
  - Ophthalmoplegia [Recovering/Resolving]
  - Dysarthria [Recovering/Resolving]
